FAERS Safety Report 14662569 (Version 1)
Quarter: 2018Q1

REPORT INFORMATION
  Report Type: Spontaneous
  Country: AU (occurrence: AU)
  Receive Date: 20180321
  Receipt Date: 20180321
  Transmission Date: 20180509
  Serious: Yes (Other)
  Sender: FDA-Public Use
  Company Number: AU-AMGEN-AUSSP2018036268

PATIENT
  Age: 77 Year
  Sex: Female
  Weight: 74 kg

DRUGS (2)
  1. XGEVA [Suspect]
     Active Substance: DENOSUMAB
     Indication: PRODUCT USED FOR UNKNOWN INDICATION
     Dosage: 120 MG, ONE TIMES
     Route: 058
     Dates: start: 20171207, end: 20171207
  2. XELODA [Suspect]
     Active Substance: CAPECITABINE
     Indication: PRODUCT USED FOR UNKNOWN INDICATION
     Dosage: 1500 MG, BID
     Route: 048
     Dates: start: 20171201, end: 20171215

REACTIONS (2)
  - Electrocardiogram QT prolonged [Not Recovered/Not Resolved]
  - Hypocalcaemia [Not Recovered/Not Resolved]

NARRATIVE: CASE EVENT DATE: 20171222
